FAERS Safety Report 5896728-7 (Version None)
Quarter: 2008Q3

REPORT INFORMATION
  Report Type: 
  Country: None (occurrence: None)
  Receive Date: 20080924
  Receipt Date: 20071217
  Transmission Date: 20090109
  Serious: No
  Sender: FDA-Public Use
  Company Number: US-ASTRAZENECA-2007UW28562

PATIENT
  Sex: Male

DRUGS (2)
  1. SEROQUEL [Suspect]
  2. SEROQUEL [Suspect]
     Dosage: PATIENT RAN OUT OF 25 MG TABLETS AND HIS FRIEND GAVE HIM A 100 MG TABLET INSTEAD

REACTIONS (1)
  - INCORRECT DOSE ADMINISTERED [None]
